FAERS Safety Report 5143265-3 (Version None)
Quarter: 2006Q4

REPORT INFORMATION
  Report Type: 
  Country: None (occurrence: None)
  Receive Date: 20061030
  Receipt Date: 20061017
  Transmission Date: 20070319
  Serious: Yes (Hospitalization, Other)
  Sender: FDA-Public Use
  Company Number: 2006129863

PATIENT
  Sex: Male

DRUGS (1)
  1. CELEBREX [Suspect]
     Indication: ARTHRALGIA

REACTIONS (7)
  - ASTHENIA [None]
  - CARDIAC ARREST [None]
  - DIZZINESS [None]
  - FALL [None]
  - HEAD INJURY [None]
  - SINUS ARRHYTHMIA [None]
  - SYNCOPE [None]
